FAERS Safety Report 13493986 (Version 1)
Quarter: 2017Q2

REPORT INFORMATION
  Report Type: Spontaneous
  Country: US (occurrence: US)
  Receive Date: 20170427
  Receipt Date: 20170427
  Transmission Date: 20170830
  Serious: Yes (Other)
  Sender: FDA-Public Use
  Company Number: US-DSJP-DSU-2017-112973

PATIENT

DRUGS (1)
  1. OLMESARTAN MEDOXOMIL. [Suspect]
     Active Substance: OLMESARTAN MEDOXOMIL
     Indication: PRODUCT USED FOR UNKNOWN INDICATION
     Dosage: UNK

REACTIONS (9)
  - Crohn^s disease [Unknown]
  - Gastrointestinal injury [Unknown]
  - Oesophageal adenocarcinoma [Unknown]
  - Gastritis [Unknown]
  - Adenocarcinoma gastric [Unknown]
  - Adenocarcinoma pancreas [Unknown]
  - Lymphoma [Unknown]
  - Helicobacter infection [Unknown]
  - Coeliac disease [Unknown]
